FAERS Safety Report 14869449 (Version 1)
Quarter: 2018Q2

REPORT INFORMATION
  Report Type: Report from Study
  Country: CA (occurrence: CA)
  Receive Date: 20180509
  Receipt Date: 20180509
  Transmission Date: 20180711
  Serious: Yes (Other)
  Sender: FDA-Public Use
  Company Number: CA-JNJFOC-20180501988

PATIENT
  Age: 55 Year
  Sex: Female
  Weight: 72.6 kg

DRUGS (1)
  1. STELARA [Suspect]
     Active Substance: USTEKINUMAB
     Indication: CROHN^S DISEASE
     Dosage: STRENGTH = 90 MG
     Route: 058
     Dates: start: 20160928

REACTIONS (3)
  - Crohn^s disease [Unknown]
  - Nerve injury [Unknown]
  - Tooth abscess [Unknown]

NARRATIVE: CASE EVENT DATE: 2017
